FAERS Safety Report 16323814 (Version 2)
Quarter: 2019Q2

REPORT INFORMATION
  Report Type: Report from Study
  Country: US (occurrence: US)
  Receive Date: 20190517
  Receipt Date: 20190522
  Transmission Date: 20190711
  Serious: Yes (Death)
  Sender: FDA-Public Use
  Company Number: US-ROCHE-2317529

PATIENT
  Sex: Female

DRUGS (7)
  1. PULMOZYME [Suspect]
     Active Substance: DORNASE ALFA
     Indication: ACUTE RESPIRATORY FAILURE
     Dosage: NEBULIZE THE CONTENTS OF 1 VIAL(S) TWICE A DAY
     Route: 065
     Dates: start: 2013
  2. PULMOZYME [Suspect]
     Active Substance: DORNASE ALFA
     Indication: OFF LABEL USE
  3. PULMOZYME [Suspect]
     Active Substance: DORNASE ALFA
     Indication: SPUTUM ABNORMAL
     Route: 065
  4. PULMOZYME [Suspect]
     Active Substance: DORNASE ALFA
     Indication: PULMONARY OEDEMA
  5. XOPENEX [Concomitant]
     Active Substance: LEVALBUTEROL HYDROCHLORIDE
     Indication: OFF LABEL USE
  6. PULMOZYME [Suspect]
     Active Substance: DORNASE ALFA
     Indication: QUADRIPLEGIA
  7. PULMOZYME [Suspect]
     Active Substance: DORNASE ALFA
     Indication: PNEUMOTHORAX

REACTIONS (4)
  - Off label use [Unknown]
  - Acute respiratory distress syndrome [Fatal]
  - Respiratory failure [Fatal]
  - Intentional product use issue [Unknown]
